FAERS Safety Report 24822948 (Version 1)
Quarter: 2025Q1

REPORT INFORMATION
  Report Type: Spontaneous
  Country: US (occurrence: US)
  Receive Date: 20250109
  Receipt Date: 20250109
  Transmission Date: 20250409
  Serious: Yes (Hospitalization)
  Sender: AUROBINDO
  Company Number: US-AUROBINDO-AUR-APL-2024-024814

PATIENT
  Age: 39 Year
  Sex: Male
  Weight: 117.93 kg

DRUGS (4)
  1. CLOZAPINE [Suspect]
     Active Substance: CLOZAPINE
     Indication: Schizoaffective disorder
     Route: 048
     Dates: end: 20240514
  2. CLOZAPINE [Suspect]
     Active Substance: CLOZAPINE
     Indication: Aggression
  3. CLOZAPINE [Suspect]
     Active Substance: CLOZAPINE
     Indication: Paranoia
  4. GUANFACINE [Concomitant]
     Active Substance: GUANFACINE
     Indication: Product used for unknown indication
     Route: 065

REACTIONS (3)
  - Asthenia [Not Recovered/Not Resolved]
  - Sedation [Not Recovered/Not Resolved]
  - Somnolence [Not Recovered/Not Resolved]
